FAERS Safety Report 24367454 (Version 1)
Quarter: 2024Q3

REPORT INFORMATION
  Report Type: Spontaneous
  Country: GB (occurrence: GB)
  Receive Date: 20240926
  Receipt Date: 20240926
  Transmission Date: 20241017
  Serious: Yes (Hospitalization, Other)
  Sender: PFIZER
  Company Number: GB-LDELTA-NLLD0004751

PATIENT
  Age: 43 Year
  Sex: Male

DRUGS (9)
  1. DOXORUBICIN [Interacting]
     Active Substance: DOXORUBICIN
     Indication: Diffuse large B-cell lymphoma
     Dosage: UNK
     Dates: start: 20100326, end: 2011
  2. VINCRISTINE SULFATE [Interacting]
     Active Substance: VINCRISTINE SULFATE
     Indication: Diffuse large B-cell lymphoma
     Dosage: UNK
     Dates: start: 20100326, end: 2011
  3. CYCLOPHOSPHAMIDE [Interacting]
     Active Substance: CYCLOPHOSPHAMIDE
     Indication: Diffuse large B-cell lymphoma
     Dosage: UNK
     Dates: start: 20100326, end: 2011
  4. CLOZAPINE [Suspect]
     Active Substance: CLOZAPINE
     Dosage: 600 MG, 1X/DAY
     Dates: start: 20070510
  5. RITUXIMAB [Interacting]
     Active Substance: RITUXIMAB
     Indication: Diffuse large B-cell lymphoma
     Dosage: UNK
     Dates: start: 20100326, end: 2011
  6. PREDNISOLONE [Interacting]
     Active Substance: PREDNISOLONE
     Dosage: UNK
     Dates: start: 20100326, end: 2011
  7. LANSOPRAZOLE [Concomitant]
     Active Substance: LANSOPRAZOLE
     Route: 048
  8. CYANOCOBALAMIN [Concomitant]
     Active Substance: CYANOCOBALAMIN
     Dosage: EVERY 3/12
     Route: 030
     Dates: start: 2007
  9. AMISULPRIDE [Concomitant]
     Active Substance: AMISULPRIDE
     Dosage: 400 MG, 1X/DAY
     Route: 048
     Dates: start: 2005

REACTIONS (4)
  - Neoplasm progression [Unknown]
  - Neutropenia [Recovered/Resolved]
  - Leukopenia [Recovered/Resolved]
  - Drug interaction [Unknown]

NARRATIVE: CASE EVENT DATE: 20100201
